FAERS Safety Report 4561120-4 (Version None)
Quarter: 2005Q1

REPORT INFORMATION
  Report Type: 
  Country: None (occurrence: None)
  Receive Date: 20050121
  Receipt Date: 20050107
  Transmission Date: 20050727
  Serious: No
  Sender: FDA-Public Use
  Company Number: 2005AP00140

PATIENT
  Age: 75 Year
  Sex: Male

DRUGS (8)
  1. ATENOLOL [Suspect]
     Indication: ILL-DEFINED DISORDER
     Dosage: 25 MG DAILY PO
     Route: 048
  2. LIPITOR [Suspect]
     Indication: HYPERCHOLESTEROLAEMIA
     Dosage: 80 MG DAILY
  3. NEURONTIN [Suspect]
     Indication: TREMOR
     Dosage: 300 MG TID PO
     Route: 048
  4. GLIPIZIDE [Suspect]
     Indication: ILL-DEFINED DISORDER
     Dosage: 10 MG BID PO
     Route: 048
  5. PREVACID [Suspect]
     Indication: ILL-DEFINED DISORDER
     Dosage: 30 MG BID PO
     Route: 048
  6. ALTACE [Suspect]
     Indication: ILL-DEFINED DISORDER
     Dosage: 2.5 MG DAILY PO
     Route: 048
  7. NITROTAB [Concomitant]
  8. PLAVIX [Concomitant]

REACTIONS (5)
  - CARDIAC DISORDER [None]
  - DIABETES MELLITUS [None]
  - MYOCARDIAL INFARCTION [None]
  - NERVOUS SYSTEM DISORDER [None]
  - TREMOR [None]
